FAERS Safety Report 24823984 (Version 1)
Quarter: 2025Q1

REPORT INFORMATION
  Report Type: Report from Study
  Country: US (occurrence: US)
  Receive Date: 20250109
  Receipt Date: 20250109
  Transmission Date: 20250408
  Serious: Yes (Other)
  Sender: ABBVIE
  Company Number: US-ABBVIE-6072905

PATIENT
  Age: 76 Year
  Sex: Female
  Weight: 55 kg

DRUGS (3)
  1. RESTASIS [Suspect]
     Active Substance: CYCLOSPORINE
     Indication: Dry eye
     Dosage: FORM STRENGTH: 0.5 MG
     Route: 047
     Dates: start: 2024
  2. GABAPENTIN [Concomitant]
     Active Substance: GABAPENTIN
     Indication: Pain
  3. NATURE-THROID [Concomitant]
     Active Substance: THYROID, PORCINE
     Indication: Thyroid disorder

REACTIONS (2)
  - Shoulder operation [Recovered/Resolved]
  - Micrographic skin surgery [Recovered/Resolved]

NARRATIVE: CASE EVENT DATE: 20240101
